FAERS Safety Report 5616631-7 (Version None)
Quarter: 2008Q1

REPORT INFORMATION
  Report Type: 
  Country: None (occurrence: None)
  Receive Date: 20080207
  Receipt Date: 20071116
  Transmission Date: 20080703
  Serious: No
  Sender: FDA-Public Use
  Company Number: A0694985A

PATIENT
  Age: 38 Year
  Sex: Female

DRUGS (2)
  1. PAXIL CR [Suspect]
     Dosage: 25MG PER DAY
     Route: 048
     Dates: start: 20061101, end: 20071031
  2. BUPROPION HCL [Suspect]
     Indication: DRUG USE FOR UNKNOWN INDICATION
     Route: 048
     Dates: start: 20071031

REACTIONS (6)
  - DIZZINESS [None]
  - FEELING JITTERY [None]
  - NAUSEA [None]
  - VERTIGO [None]
  - WEIGHT INCREASED [None]
  - WITHDRAWAL SYNDROME [None]
